FAERS Safety Report 11558917 (Version 2)
Quarter: 2015Q4

REPORT INFORMATION
  Report Type: Report from Study
  Country: CA (occurrence: CA)
  Receive Date: 20150928
  Receipt Date: 20151006
  Transmission Date: 20160304
  Serious: Yes (Other)
  Sender: FDA-Public Use
  Company Number: CA-BAYER-2015-409081

PATIENT
  Age: 62 Year
  Sex: Male

DRUGS (7)
  1. STEMETIL [Concomitant]
     Active Substance: PROCHLORPERAZINE MALEATE
  2. TAMSULOSIN [Concomitant]
     Active Substance: TAMSULOSIN
  3. VESICARE [Concomitant]
     Active Substance: SOLIFENACIN SUCCINATE
  4. STIVARGA [Suspect]
     Active Substance: REGORAFENIB
     Indication: COLORECTAL CANCER METASTATIC
     Dosage: 160 MG, QD
     Route: 048
     Dates: start: 20150813, end: 201509
  5. RABEPRAZOLE [Concomitant]
     Active Substance: RABEPRAZOLE
  6. HYDROMORPH CONTIN [Concomitant]
     Active Substance: HYDROMORPHONE
  7. HYDROMORPHONE [Concomitant]
     Active Substance: HYDROMORPHONE

REACTIONS (7)
  - Male genital tract fistula [Not Recovered/Not Resolved]
  - Gastrointestinal pain [Not Recovered/Not Resolved]
  - Blister [Unknown]
  - Intestinal fistula [Not Recovered/Not Resolved]
  - Gait disturbance [None]
  - Vesical fistula [Not Recovered/Not Resolved]
  - Skin exfoliation [Not Recovered/Not Resolved]

NARRATIVE: CASE EVENT DATE: 2015
